FAERS Safety Report 8782733 (Version 1)
Quarter: 2012Q4

REPORT INFORMATION
  Report Type: 
  Country: GB (occurrence: GB)
  Receive Date: 20120913
  Receipt Date: 20120913
  Transmission Date: 20130627
  Serious: Yes (Hospitalization, Other)
  Sender: FDA-Public Use
  Company Number: GB-TEVA-357208ISR

PATIENT
  Age: 32 Year
  Sex: Male

DRUGS (5)
  1. VALPROIC ACID [Suspect]
     Indication: CONVULSION
     Dates: start: 20120718
  2. ZAPONEX [Suspect]
     Route: 048
     Dates: start: 20120312, end: 20120718
  3. ZAPONEX [Suspect]
     Route: 048
     Dates: start: 20120723, end: 20120726
  4. LANSOPRAZOLE [Concomitant]
     Indication: GASTRITIS
     Route: 048
     Dates: start: 20100603
  5. DAKTACORT [Concomitant]
     Indication: PSORIASIS
     Route: 061

REACTIONS (10)
  - Fall [Recovered/Resolved]
  - Convulsion [Recovered/Resolved]
  - Anxiety [Unknown]
  - Dysarthria [Recovered/Resolved]
  - Face injury [Unknown]
  - Headache [Unknown]
  - Epilepsy [Unknown]
  - Malaise [Unknown]
  - Nausea [Unknown]
  - Sunburn [Unknown]
